FAERS Safety Report 23445174 (Version 6)
Quarter: 2024Q2

REPORT INFORMATION
  Report Type: Report from Study
  Country: ES (occurrence: ES)
  Receive Date: 20240125
  Receipt Date: 20240621
  Transmission Date: 20240716
  Serious: No
  Sender: FDA-Public Use
  Company Number: ES-ABBVIE-5600220

PATIENT
  Age: 36 Year
  Sex: Male
  Weight: 74 kg

DRUGS (3)
  1. UPADACITINIB [Suspect]
     Active Substance: UPADACITINIB
     Indication: Axial spondyloarthritis
     Route: 048
     Dates: start: 20230921
  2. ETORICOXIB [Concomitant]
     Active Substance: ETORICOXIB
     Indication: Axial spondyloarthritis
     Route: 048
     Dates: start: 202302
  3. INDOMETHACIN [Concomitant]
     Active Substance: INDOMETHACIN
     Indication: Axial spondyloarthritis
     Dosage: TIME INTERVAL: AS NECESSARY
     Route: 048
     Dates: start: 20230816

REACTIONS (2)
  - Anxiety [Not Recovered/Not Resolved]
  - Insomnia [Not Recovered/Not Resolved]

NARRATIVE: CASE EVENT DATE: 20231021
